FAERS Safety Report 7442422-0 (Version None)
Quarter: 2011Q2

REPORT INFORMATION
  Report Type: 
  Country: None (occurrence: None)
  Receive Date: 20110420
  Receipt Date: 20110408
  Transmission Date: 20111010
  Serious: Yes (Other)
  Sender: FDA-Public Use
  Company Number: 2011P1004161

PATIENT
  Age: 33 Year
  Sex: Female
  Weight: 72.5755 kg

DRUGS (6)
  1. PROZAC [Concomitant]
  2. XANAX [Concomitant]
  3. CLOMIPRAMINE HCL [Suspect]
     Indication: ANXIETY
     Dosage: 50 MG;QD;PO; 100 MG;QD;PO; 300 MG;QD;PO; 200 MG;BID;PO
     Route: 048
     Dates: start: 20081125, end: 20081228
  4. CLOMIPRAMINE HCL [Suspect]
     Indication: ANXIETY
     Dosage: 50 MG;QD;PO; 100 MG;QD;PO; 300 MG;QD;PO; 200 MG;BID;PO
     Route: 048
     Dates: start: 20090213, end: 20090220
  5. CLOMIPRAMINE HCL [Suspect]
     Indication: ANXIETY
     Dosage: 50 MG;QD;PO; 100 MG;QD;PO; 300 MG;QD;PO; 200 MG;BID;PO
     Route: 048
     Dates: start: 20081229, end: 20090117
  6. CLOMIPRAMINE HCL [Suspect]
     Indication: ANXIETY
     Dosage: 50 MG;QD;PO; 100 MG;QD;PO; 300 MG;QD;PO; 200 MG;BID;PO
     Route: 048
     Dates: start: 20090118, end: 20090212

REACTIONS (15)
  - NAUSEA [None]
  - CONVULSION [None]
  - DRUG PRESCRIBING ERROR [None]
  - WHITE BLOOD CELL COUNT INCREASED [None]
  - HYPERACUSIS [None]
  - DRUG DISPENSING ERROR [None]
  - PANIC DISORDER [None]
  - MIGRAINE [None]
  - OCCIPITAL NEURALGIA [None]
  - OVERDOSE [None]
  - CERVICOBRACHIAL SYNDROME [None]
  - CARPAL TUNNEL SYNDROME [None]
  - DYSPHORIA [None]
  - MOVEMENT DISORDER [None]
  - PHOTOPHOBIA [None]
